FAERS Safety Report 7555454-9 (Version None)
Quarter: 2011Q2

REPORT INFORMATION
  Report Type: 
  Country: None (occurrence: None)
  Receive Date: 20110617
  Receipt Date: 20110612
  Transmission Date: 20111010
  Serious: Yes (Other)
  Sender: FDA-Public Use
  Company Number: US-ABBOTT-11P-163-0732326-00

PATIENT
  Sex: Female
  Weight: 83.082 kg

DRUGS (5)
  1. HUMIRA [Suspect]
     Indication: CROHN'S DISEASE
     Dates: start: 20101201
  2. OSCAL D [Concomitant]
     Indication: OSTEOPOROSIS
  3. FOSAMAX [Concomitant]
     Indication: OSTEOPOROSIS
  4. FERROUS SULFATE TAB [Concomitant]
     Indication: MINERAL SUPPLEMENTATION
  5. ZANTAC [Concomitant]
     Indication: DYSPEPSIA
     Dosage: 150

REACTIONS (3)
  - ABORTION SPONTANEOUS [None]
  - BLOOD FOLATE DECREASED [None]
  - INJECTION SITE PAIN [None]
